FAERS Safety Report 23987436 (Version 1)
Quarter: 2024Q2

REPORT INFORMATION
  Report Type: Spontaneous
  Country: PE (occurrence: PE)
  Receive Date: 20240618
  Receipt Date: 20240618
  Transmission Date: 20240716
  Serious: Yes (Hospitalization)
  Sender: FDA-Public Use
  Company Number: PE-Nostrum Laboratories, Inc.-2158285

PATIENT
  Age: 64 Year
  Sex: Male

DRUGS (2)
  1. DUTASTERIDE [Suspect]
     Active Substance: DUTASTERIDE
     Indication: Benign prostatic hyperplasia
     Route: 048
  2. TAMSULOSIN HYDROCHLORIDE [Suspect]
     Active Substance: TAMSULOSIN HYDROCHLORIDE
     Route: 048

REACTIONS (3)
  - Abdominal pain [Recovered/Resolved]
  - Drug-induced liver injury [Recovered/Resolved]
  - Jaundice [Recovered/Resolved]
